FAERS Safety Report 5447034-6 (Version None)
Quarter: 2007Q3

REPORT INFORMATION
  Report Type: 
  Country: None (occurrence: None)
  Receive Date: 20070803
  Receipt Date: 20070402
  Transmission Date: 20080115
  Serious: Yes (Hospitalization)
  Sender: FDA-Public Use
  Company Number: DSU-2007-00032

PATIENT
  Age: 73 Year
  Sex: Female

DRUGS (2)
  1. BENICAR HCT [Suspect]
     Indication: HYPERTENSION
     Dosage: PER ORAL
     Route: 048
     Dates: start: 20060702, end: 20061210
  2. BENICAR HCT [Suspect]
     Indication: ILL-DEFINED DISORDER
     Dosage: PER ORAL
     Route: 048
     Dates: start: 20060702, end: 20061210

REACTIONS (2)
  - HYPOKALAEMIA [None]
  - HYPONATRAEMIA [None]
